FAERS Safety Report 8761352 (Version 1)
Quarter: 2012Q4

REPORT INFORMATION
  Report Type: 
  Country: US (occurrence: US)
  Receive Date: 20120830
  Receipt Date: 20120830
  Transmission Date: 20130627
  Serious: Yes (Hospitalization, Other)
  Sender: FDA-Public Use
  Company Number: US-ABBOTT-12P-163-0973197-00

PATIENT
  Sex: Male
  Weight: 80.81 kg

DRUGS (2)
  1. LUPRON DEPOT 7.5 MG [Suspect]
     Indication: PROSTATE CANCER
     Dosage: on hold
     Dates: start: 201103, end: 201208
  2. ZOFRAN [Suspect]
     Indication: NAUSEA
     Route: 042
     Dates: start: 201208, end: 201208

REACTIONS (15)
  - Ascites [Unknown]
  - Weight increased [Unknown]
  - Abdominal distension [Unknown]
  - Abdominal pain [Unknown]
  - Nausea [Unknown]
  - Decreased appetite [Unknown]
  - Atrial fibrillation [Unknown]
  - Ascites [Unknown]
  - Decreased appetite [Unknown]
  - Feeling abnormal [Unknown]
  - Increased upper airway secretion [Unknown]
  - Hyperchlorhydria [Unknown]
  - Dyspepsia [Unknown]
  - Oesophageal disorder [Unknown]
  - Vomiting [Unknown]
